FAERS Safety Report 7377953-5 (Version None)
Quarter: 2011Q1

REPORT INFORMATION
  Report Type: 
  Country: None (occurrence: None)
  Receive Date: 20110328
  Receipt Date: 20110323
  Transmission Date: 20110831
  Serious: Yes (Hospitalization)
  Sender: FDA-Public Use
  Company Number: IT-PFIZER INC-2011065358

PATIENT
  Age: 78 Year
  Sex: Female

DRUGS (1)
  1. ZOLOFT [Suspect]
     Indication: MAJOR DEPRESSION
     Dosage: 1 UNIT DOSE DAILY
     Route: 048
     Dates: start: 20100104, end: 20100105

REACTIONS (1)
  - SOPOR [None]
